FAERS Safety Report 24397907 (Version 1)
Quarter: 2024Q4

REPORT INFORMATION
  Report Type: Spontaneous
  Country: US (occurrence: US)
  Receive Date: 20241004
  Receipt Date: 20241004
  Transmission Date: 20250115
  Serious: No
  Sender: PFIZER
  Company Number: US-PFIZER INC-202400268076

PATIENT
  Age: 78 Year
  Sex: Male

DRUGS (11)
  1. XELJANZ [Suspect]
     Active Substance: TOFACITINIB CITRATE
     Dosage: 5 MG, 2X/DAY (60/BTL)
     Route: 048
  2. MESALAMINE [Concomitant]
     Active Substance: MESALAMINE
     Dosage: 1.2 G, DR
  3. MESALAMINE [Concomitant]
     Active Substance: MESALAMINE
     Dosage: 4 G/60 ML
  4. ATROPINE\DIPHENOXYLATE [Concomitant]
     Active Substance: ATROPINE\DIPHENOXYLATE
     Dosage: UNK
  5. TAMSULOSIN HYDROCHLORIDE [Concomitant]
     Active Substance: TAMSULOSIN HYDROCHLORIDE
     Dosage: 0.4 MG
  6. CARVEDILOL [Concomitant]
     Active Substance: CARVEDILOL
     Dosage: 25 MG
  7. PAROXETINE HYDROCHLORIDE [Concomitant]
     Active Substance: PAROXETINE HYDROCHLORIDE
     Dosage: 30 MG
  8. AMITRIPTYLINE HYDROCHLORIDE [Concomitant]
     Active Substance: AMITRIPTYLINE HYDROCHLORIDE
     Dosage: 50 MG
  9. ROSUVASTATIN CALCIUM [Concomitant]
     Active Substance: ROSUVASTATIN CALCIUM
     Dosage: 5 MG
  10. FAMOTIDINE [Concomitant]
     Active Substance: FAMOTIDINE
     Dosage: 20 MG
  11. AMLODIPINE BESYLATE [Concomitant]
     Active Substance: AMLODIPINE BESYLATE
     Dosage: 10 MG

REACTIONS (1)
  - Diarrhoea [Not Recovered/Not Resolved]
